FAERS Safety Report 8059843-8 (Version None)
Quarter: 2012Q1

REPORT INFORMATION
  Report Type: 
  Country: None (occurrence: None)
  Receive Date: 20120120
  Receipt Date: 20120113
  Transmission Date: 20120608
  Serious: Yes (Other)
  Sender: FDA-Public Use
  Company Number: US-JNJFOC-20111103043

PATIENT
  Sex: Female
  Weight: 112.49 kg

DRUGS (11)
  1. REMICADE [Suspect]
     Route: 042
     Dates: start: 20110101
  2. LOVASTATIN [Concomitant]
     Indication: BLOOD CHOLESTEROL
     Route: 048
  3. NORCO [Concomitant]
  4. NEURONTIN [Concomitant]
  5. METHOTREXATE [Concomitant]
     Indication: PSORIATIC ARTHROPATHY
     Route: 058
  6. BUMEX [Concomitant]
     Indication: FLUID RETENTION
     Route: 048
  7. LISINOPRIL [Concomitant]
     Indication: TYPE 1 DIABETES MELLITUS
     Route: 048
  8. LISINOPRIL [Concomitant]
     Indication: BLOOD PRESSURE
     Route: 048
  9. FOLIC ACID [Concomitant]
     Indication: VITAMIN SUPPLEMENTATION
     Route: 048
  10. METHADONE HCL [Concomitant]
  11. REMICADE [Suspect]
     Indication: PSORIATIC ARTHROPATHY
     Route: 042
     Dates: start: 20100616

REACTIONS (4)
  - MUSCULOSKELETAL STIFFNESS [None]
  - PAIN [None]
  - THERAPEUTIC RESPONSE DECREASED [None]
  - ABASIA [None]
